FAERS Safety Report 10066278 (Version 2)
Quarter: 2014Q2

REPORT INFORMATION
  Report Type: Spontaneous
  Country: GB (occurrence: GB)
  Receive Date: 20140408
  Receipt Date: 20140417
  Transmission Date: 20141212
  Serious: Yes (Disabling, Other)
  Sender: FDA-Public Use
  Company Number: PHFR2014GB002591

PATIENT
  Age: 53 Year
  Sex: Male

DRUGS (9)
  1. CLOZARIL [Suspect]
     Dosage: UNK UKN, UNK
     Route: 048
     Dates: start: 20010807
  2. CLOZARIL [Suspect]
     Dosage: 225 MG, UNK
     Route: 048
     Dates: start: 201112
  3. DIAZEPAM [Concomitant]
     Indication: PANIC DISORDER
     Dosage: 2 UKN
     Route: 048
  4. PROPRANOLOL [Concomitant]
     Indication: PANIC DISORDER
     Dosage: 8 RJ
     Route: 048
  5. METFORMIN [Concomitant]
     Indication: DIABETES MELLITUS
     Dosage: 1 G, UNK
     Route: 048
  6. SIMVASTATIN [Concomitant]
     Indication: BLOOD CHOLESTEROL INCREASED
     Dosage: 20 S
     Route: 048
  7. LANSOPRAZOLE [Concomitant]
     Indication: DYSPEPSIA
     Dosage: 3 RS
     Route: 048
  8. SALBUTAMOL [Concomitant]
     Indication: ASTHMA
     Dosage: UNK UKN, UNK
     Route: 055
  9. PAROXETINE [Concomitant]
     Indication: DEPRESSION
     Dosage: 4 RS

REACTIONS (2)
  - Multiple sclerosis [Unknown]
  - Pain in extremity [Unknown]
